FAERS Safety Report 9100531 (Version 1)
Quarter: 2013Q1

REPORT INFORMATION
  Report Type: Report from Study
  Country: DE (occurrence: DE)
  Receive Date: 20130215
  Receipt Date: 20130215
  Transmission Date: 20140127
  Serious: Yes (Other)
  Sender: FDA-Public Use
  Company Number: PHHY2013DE014773

PATIENT
  Sex: Male

DRUGS (1)
  1. FTY 720 [Suspect]
     Dosage: 0.5 MG, QD
     Route: 048

REACTIONS (1)
  - Suicidal ideation [Unknown]
